FAERS Safety Report 6480824-X (Version None)
Quarter: 2009Q4

REPORT INFORMATION
  Report Type: 
  Country: None (occurrence: None)
  Receive Date: 20091123
  Receipt Date: 20090928
  Transmission Date: 20100525
  Serious: No
  Sender: FDA-Public Use
  Company Number: 8052637

PATIENT
  Age: 45 Year
  Sex: Female
  Weight: 88.4 kg

DRUGS (6)
  1. CIMZIA [Suspect]
     Indication: CROHN'S DISEASE
     Dosage: 400 MG SC
     Route: 058
     Dates: start: 20090927
  2. LYRICA [Concomitant]
  3. LAMICTAL [Concomitant]
  4. ENABLEX [Concomitant]
  5. VALTREX [Concomitant]
  6. NEXIUM [Concomitant]

REACTIONS (5)
  - ARTHROPOD BITE [None]
  - DYSPNOEA [None]
  - ERYTHEMA [None]
  - FATIGUE [None]
  - HEART RATE IRREGULAR [None]
